FAERS Safety Report 19242582 (Version 1)
Quarter: 2021Q2

REPORT INFORMATION
  Report Type: Spontaneous
  Country: AR (occurrence: AR)
  Receive Date: 20210511
  Receipt Date: 20210511
  Transmission Date: 20210717
  Serious: Yes (Other)
  Sender: FDA-Public Use
  Company Number: AR-PFIZER INC-2021335558

PATIENT
  Age: 68 Year
  Sex: Female

DRUGS (1)
  1. IBRANCE [Suspect]
     Active Substance: PALBOCICLIB
     Indication: BREAST CANCER METASTATIC
     Dosage: 125 MG, CYCLIC (DAILY, 3/1 SCHEME)
     Dates: start: 20200805

REACTIONS (7)
  - Oral mucosal blistering [Unknown]
  - Arthralgia [Unknown]
  - Pain [Unknown]
  - Oral pain [Unknown]
  - Nasopharyngitis [Unknown]
  - Back pain [Unknown]
  - Tumour pain [Not Recovered/Not Resolved]
